FAERS Safety Report 7689446-6 (Version None)
Quarter: 2011Q3

REPORT INFORMATION
  Report Type: 
  Country: None (occurrence: None)
  Receive Date: 20110817
  Receipt Date: 20110811
  Transmission Date: 20111222
  Serious: Yes (Hospitalization, Other)
  Sender: FDA-Public Use
  Company Number: US-PFIZER INC-2011118590

PATIENT
  Sex: Male

DRUGS (4)
  1. ENALAPRIL [Concomitant]
     Indication: BLOOD PRESSURE
     Dosage: UNK
     Dates: start: 20080101, end: 20100501
  2. PRAVASTATIN [Concomitant]
     Indication: BLOOD CHOLESTEROL
     Dosage: UNK
     Dates: start: 20080101
  3. CHANTIX [Suspect]
     Indication: SMOKING CESSATION THERAPY
     Dosage: 1 TABLET DAILY
     Dates: start: 20090201, end: 20090620
  4. ATENOLOL [Concomitant]
     Indication: BLOOD PRESSURE
     Dosage: UNK
     Dates: start: 20080101

REACTIONS (12)
  - DEPRESSION [None]
  - TOOTH AVULSION [None]
  - AGITATION [None]
  - STRESS FRACTURE [None]
  - DEVICE FAILURE [None]
  - ABNORMAL DREAMS [None]
  - INTENTIONAL SELF-INJURY [None]
  - MOOD ALTERED [None]
  - ABNORMAL BEHAVIOUR [None]
  - AGGRESSION [None]
  - LIP INJURY [None]
  - JAW FRACTURE [None]
